FAERS Safety Report 8273620-4 (Version None)
Quarter: 2012Q2

REPORT INFORMATION
  Report Type: 
  Country: None (occurrence: None)
  Receive Date: 20120411
  Receipt Date: 20120202
  Transmission Date: 20120825
  Serious: No
  Sender: FDA-Public Use
  Company Number: US-TEVA-320840USA

PATIENT
  Sex: Female
  Weight: 113.5 kg

DRUGS (4)
  1. VENLAFAXINE [Concomitant]
     Indication: CATAPLEXY
  2. HIGH BLOOD PRESSURE MEDICATION [Concomitant]
     Indication: HYPERTENSION
  3. NUVIGIL [Suspect]
     Dosage: QAM
     Route: 048
  4. DIURETIC [Concomitant]

REACTIONS (1)
  - INSOMNIA [None]
